FAERS Safety Report 7702018-X (Version None)
Quarter: 2011Q3

REPORT INFORMATION
  Report Type: 
  Country: None (occurrence: None)
  Receive Date: 20110822
  Receipt Date: 20110818
  Transmission Date: 20111222
  Serious: Yes (Death)
  Sender: FDA-Public Use
  Company Number: PHEH2011US01868

PATIENT
  Sex: Male
  Weight: 77.31 kg

DRUGS (1)
  1. EXJADE [Suspect]
     Indication: ANAEMIA
     Dosage: 750 MG, QD
     Route: 048
     Dates: start: 20100302

REACTIONS (1)
  - DEATH [None]
